FAERS Safety Report 25915823 (Version 1)
Quarter: 2025Q4

REPORT INFORMATION
  Report Type: Spontaneous
  Country: US (occurrence: US)
  Receive Date: 20251013
  Receipt Date: 20251013
  Transmission Date: 20260117
  Serious: No
  Sender: BIOGEN
  Company Number: US-BIOGEN-2025BI01326719

PATIENT
  Sex: Female

DRUGS (2)
  1. PLEGRIDY [Suspect]
     Active Substance: PEGINTERFERON BETA-1A
     Indication: Multiple sclerosis
     Route: 050
     Dates: start: 20250416, end: 20250829
  2. PLEGRIDY [Suspect]
     Active Substance: PEGINTERFERON BETA-1A

REACTIONS (6)
  - Pain in extremity [Unknown]
  - Sensory disturbance [Unknown]
  - Speech disorder [Unknown]
  - Gait disturbance [Unknown]
  - Loss of therapeutic response [Unknown]
  - Nasopharyngitis [Unknown]
